FAERS Safety Report 6658675-2 (Version None)
Quarter: 2010Q1

REPORT INFORMATION
  Report Type: 
  Country: None (occurrence: None)
  Receive Date: 20100330
  Receipt Date: 20100318
  Transmission Date: 20100710
  Serious: Yes (Hospitalization)
  Sender: FDA-Public Use
  Company Number: PHHY2010IT08655

PATIENT
  Sex: Female

DRUGS (4)
  1. TASIGNA [Suspect]
     Indication: CHRONIC MYELOID LEUKAEMIA
     Dosage: 800 MG DAILY
     Route: 048
     Dates: start: 20091206
  2. TASIGNA [Suspect]
     Dosage: UNK
  3. METOPROLOL TARTRATE [Concomitant]
     Dosage: 150 MG, UNK
     Dates: start: 20000101
  4. HALCION [Concomitant]
     Dosage: 25 MG, UNK
     Dates: start: 19990101

REACTIONS (2)
  - ANAEMIA [None]
  - ANGINA PECTORIS [None]
